FAERS Safety Report 7989195-0 (Version None)
Quarter: 2011Q4

REPORT INFORMATION
  Report Type: 
  Country: None (occurrence: None)
  Receive Date: 20111219
  Receipt Date: 20111212
  Transmission Date: 20120403
  Serious: Yes (Hospitalization)
  Sender: FDA-Public Use
  Company Number: US-JNJFOC-20110611601

PATIENT
  Sex: Male
  Weight: 68.04 kg

DRUGS (2)
  1. LEVAQUIN [Suspect]
     Indication: ABSCESS
     Route: 048
     Dates: start: 20110101
  2. RIFAMPIN [Concomitant]
     Indication: ABSCESS
     Route: 065
     Dates: start: 20110101, end: 20110101

REACTIONS (5)
  - TREMOR [None]
  - PSYCHOMOTOR HYPERACTIVITY [None]
  - INSOMNIA [None]
  - HALLUCINATION [None]
  - DIARRHOEA [None]
